FAERS Safety Report 8338711-8 (Version None)
Quarter: 2012Q2

REPORT INFORMATION
  Report Type: 
  Country: None (occurrence: None)
  Receive Date: 20120504
  Receipt Date: 20120502
  Transmission Date: 20120825
  Serious: Yes (Death, Hospitalization)
  Sender: FDA-Public Use
  Company Number: US-B.I. PHARMACEUTICALS,INC./RIDGEFIELD-2012-BP-09681BP

PATIENT
  Sex: Female

DRUGS (13)
  1. LORCET-HD [Concomitant]
     Indication: PAIN
     Route: 048
  2. LIPITOR [Concomitant]
  3. IMDUR [Concomitant]
  4. PLAVIX [Concomitant]
  5. VENTOLIN [Concomitant]
  6. UNSPECIFIED HEART MEDICATIONS [Concomitant]
  7. TOPROL-XL [Concomitant]
     Indication: HYPERTENSION
  8. XANAX [Concomitant]
     Indication: ANXIETY
  9. NITROGLYCERIN [Concomitant]
     Indication: CHEST PAIN
  10. SPIRIVA [Suspect]
     Indication: CHRONIC OBSTRUCTIVE PULMONARY DISEASE
     Dosage: 18 MCG
     Route: 055
     Dates: start: 20100401
  11. OXYGEN [Concomitant]
  12. TRAMADOL HCL [Concomitant]
     Indication: PAIN
  13. ADVAIR DISKUS 100/50 [Concomitant]
     Indication: CHRONIC OBSTRUCTIVE PULMONARY DISEASE
     Dosage: (POWDER) STRENGTH: 250 / 50 MCG; DAILY DOSE: 250 / 50 MCG
     Route: 055
     Dates: start: 20080101

REACTIONS (2)
  - CHRONIC OBSTRUCTIVE PULMONARY DISEASE [None]
  - ACUTE RESPIRATORY FAILURE [None]
